FAERS Safety Report 26082594 (Version 1)
Quarter: 2025Q4

REPORT INFORMATION
  Report Type: Spontaneous
  Country: US (occurrence: None)
  Receive Date: 20251122
  Receipt Date: 20251122
  Transmission Date: 20260118
  Serious: Yes (Hospitalization)
  Sender: FDA-CTU
  Company Number: None

PATIENT
  Age: 79 Year
  Sex: Female

DRUGS (1)
  1. OTEZLA [Suspect]
     Active Substance: APREMILAST
     Indication: Psoriatic arthropathy
     Dosage: 30MG  BID IN MORNING AND EVENING?

REACTIONS (6)
  - Fall [None]
  - Neck pain [None]
  - Back pain [None]
  - Spinal stenosis [None]
  - Product use issue [None]
  - Product dose omission issue [None]
